FAERS Safety Report 8144977-X (Version None)
Quarter: 2012Q1

REPORT INFORMATION
  Report Type: 
  Country: None (occurrence: None)
  Receive Date: 20120217
  Receipt Date: 20120216
  Transmission Date: 20120608
  Serious: Yes (Hospitalization)
  Sender: FDA-Public Use
  Company Number: FR-MERCK-1104FRA00012

PATIENT
  Age: 37 Year
  Sex: Male
  Weight: 90 kg

DRUGS (5)
  1. EMTRICITABINE AND TENOFOVIR DISOPROXIL FUMARATE [Concomitant]
     Indication: HIV INFECTION
     Route: 048
  2. PREGABALIN [Concomitant]
     Route: 065
  3. CLONAZEPAM [Concomitant]
     Route: 065
  4. PAROXETINE HYDROCHLORIDE [Concomitant]
     Route: 065
  5. ISENTRESS [Suspect]
     Indication: HIV INFECTION
     Route: 048
     Dates: start: 20100315

REACTIONS (1)
  - BURKITT'S LYMPHOMA [None]
